FAERS Safety Report 15240854 (Version 1)
Quarter: 2018Q3

REPORT INFORMATION
  Report Type: Spontaneous
  Country: US (occurrence: US)
  Receive Date: 20180710
  Receipt Date: 20180710
  Transmission Date: 20181010
  Serious: Yes (Death)
  Sender: FDA-Public Use
  Company Number: None

PATIENT
  Age: 79 Year
  Sex: Male
  Weight: 67.7 kg

DRUGS (1)
  1. PEMBROLIZUMAB. [Suspect]
     Active Substance: PEMBROLIZUMAB

REACTIONS (9)
  - Skin infection [None]
  - Lung infection [None]
  - Medical device site infection [None]
  - Multiple organ dysfunction syndrome [None]
  - Vascular device user [None]
  - Pneumonitis [None]
  - Liver function test increased [None]
  - Drug ineffective [None]
  - Renal injury [None]

NARRATIVE: CASE EVENT DATE: 20180706
